FAERS Safety Report 18668048 (Version 1)
Quarter: 2020Q4

REPORT INFORMATION
  Report Type: Spontaneous
  Country: US (occurrence: US)
  Receive Date: 20201226
  Receipt Date: 20201226
  Transmission Date: 20210114
  Serious: Yes (Other)
  Sender: FDA-Public Use
  Company Number: None

PATIENT
  Age: 8 Month
  Sex: Male
  Weight: 108.9 kg

DRUGS (1)
  1. BAMLANIVIMAB INJECTION [Suspect]
     Active Substance: BAMLANIVIMAB
     Indication: COVID-19
     Dosage: ?          OTHER FREQUENCY:ONCE;?
     Route: 041
     Dates: start: 20201224, end: 20201224

REACTIONS (2)
  - Body temperature increased [None]
  - Chills [None]

NARRATIVE: CASE EVENT DATE: 20201224
